FAERS Safety Report 5416167-2 (Version None)
Quarter: 2007Q3

REPORT INFORMATION
  Report Type: 
  Country: None (occurrence: None)
  Receive Date: 20070718
  Receipt Date: 20060717
  Transmission Date: 20080115
  Serious: Yes (Disabling, Other)
  Sender: FDA-Public Use
  Company Number: 2006006588

PATIENT
  Age: 58 Year
  Sex: Male
  Weight: 90.7194 kg

DRUGS (4)
  1. CELEBREX [Suspect]
     Indication: ARTHRALGIA
     Dosage: 200 MG (1 IN 1 D)
     Dates: start: 20000101, end: 20030101
  2. BEXTRA [Suspect]
     Indication: RHEUMATOID ARTHRITIS
     Dosage: 10 MG (1 IN 1 D)
     Dates: start: 19990101
  3. VIOXX [Suspect]
     Indication: ARTHRALGIA
  4. ACETYLSALICYLIC ACID SRT [Concomitant]

REACTIONS (1)
  - ACUTE MYOCARDIAL INFARCTION [None]
